FAERS Safety Report 23162848 (Version 1)
Quarter: 2023Q4

REPORT INFORMATION
  Report Type: Spontaneous
  Country: DE (occurrence: DE)
  Receive Date: 20231109
  Receipt Date: 20231109
  Transmission Date: 20240110
  Serious: Yes (Congenital Anomaly, Other)
  Sender: FDA-Public Use
  Company Number: DE-EMBRYOTOX-202201137

PATIENT
  Age: 1 Day
  Sex: Male
  Weight: 2.19 kg

DRUGS (7)
  1. METOPROLOL [Suspect]
     Active Substance: METOPROLOL
     Indication: Product used for unknown indication
     Route: 064
  2. METHYLDOPA [Suspect]
     Active Substance: METHYLDOPA
     Indication: Product used for unknown indication
     Dosage: 250 [MG/D ]
     Route: 064
  3. DULOXETINE [Concomitant]
     Active Substance: DULOXETINE
     Indication: Product used for unknown indication
     Dosage: 60 [MG/D ]
     Route: 064
  4. AMLODIPINE\RAMIPRIL [Concomitant]
     Active Substance: AMLODIPINE\RAMIPRIL
     Indication: Product used for unknown indication
     Dosage: 5 [MG/D ]
     Route: 064
     Dates: start: 20211208, end: 20220118
  5. CHOLECALCIFEROL [Concomitant]
     Active Substance: CHOLECALCIFEROL
     Indication: Product used for unknown indication
     Dosage: 2000 [IU/D ]
     Route: 064
  6. BORNAPRINE HYDROCHLORIDE [Concomitant]
     Active Substance: BORNAPRINE HYDROCHLORIDE
     Indication: Product used for unknown indication
     Dosage: 2 [MG/D ]/ 1-2 MG/D
     Route: 064
  7. MINOCYCLINE HYDROCHLORIDE [Concomitant]
     Active Substance: MINOCYCLINE HYDROCHLORIDE
     Indication: Product used for unknown indication
     Route: 064

REACTIONS (3)
  - Hypospadias [Not Recovered/Not Resolved]
  - Small for dates baby [Not Recovered/Not Resolved]
  - Foetal exposure during pregnancy [Unknown]

NARRATIVE: CASE EVENT DATE: 20220801
